FAERS Safety Report 16398653 (Version 2)
Quarter: 2019Q2

REPORT INFORMATION
  Report Type: Spontaneous
  Country: US (occurrence: US)
  Receive Date: 20190606
  Receipt Date: 20190625
  Transmission Date: 20190711
  Serious: No
  Sender: FDA-Public Use
  Company Number: US-PFIZER INC-2019242561

PATIENT
  Age: 63 Year
  Sex: Male

DRUGS (4)
  1. ENBREL [Suspect]
     Active Substance: ETANERCEPT
     Dosage: 50 MILLIGRAM, QWK
     Route: 065
  2. COSENTYX [Concomitant]
     Active Substance: SECUKINUMAB
     Dosage: UNK
  3. METHOTREXATE SODIUM. [Suspect]
     Active Substance: METHOTREXATE SODIUM
     Indication: PSORIATIC ARTHROPATHY
     Dosage: 10 MILLIGRAM, QWK (2.5 MILLIGRAM 4 TABLETS)
     Route: 065
     Dates: start: 20190314, end: 20190321
  4. ENBREL [Suspect]
     Active Substance: ETANERCEPT
     Indication: PSORIATIC ARTHROPATHY
     Dosage: UNK UNK, QMO
     Route: 065

REACTIONS (6)
  - Inappropriate schedule of product administration [Unknown]
  - Injection site pain [Unknown]
  - Therapeutic product effect decreased [Unknown]
  - Device issue [Unknown]
  - Nasopharyngitis [Unknown]
  - Injection site mass [Unknown]

NARRATIVE: CASE EVENT DATE: 201903
